FAERS Safety Report 9799780 (Version 2)
Quarter: 2014Q1

REPORT INFORMATION
  Report Type: Spontaneous
  Country: US (occurrence: US)
  Receive Date: 20140106
  Receipt Date: 20140106
  Transmission Date: 20141002
  Serious: No
  Sender: FDA-Public Use
  Company Number: US-GILEAD-2010-0031882

PATIENT
  Age: 74 Year
  Sex: Female
  Weight: 52.16 kg

DRUGS (14)
  1. LETAIRIS [Suspect]
     Indication: PULMONARY ARTERIAL HYPERTENSION
     Route: 048
     Dates: start: 20081230
  2. ASPIRIN [Concomitant]
  3. METAMUCIL [Concomitant]
  4. HYDROXYCHLOROQUINE [Concomitant]
  5. PREMPRO [Concomitant]
  6. ESTACE [Concomitant]
  7. PAXIL [Concomitant]
  8. RESTASIS [Concomitant]
  9. NUMOISYN [Concomitant]
  10. BIAXIN [Concomitant]
  11. CENTRUM ULTRA WOMENTS [Concomitant]
  12. TUMS [Concomitant]
  13. FISH OIL [Concomitant]
  14. VITAMIN E [Concomitant]

REACTIONS (1)
  - Balance disorder [Unknown]
